FAERS Safety Report 8083060-9 (Version None)
Quarter: 2012Q1

REPORT INFORMATION
  Report Type: 
  Country: None (occurrence: None)
  Receive Date: 20120127
  Receipt Date: 20110302
  Transmission Date: 20120608
  Serious: No
  Sender: FDA-Public Use
  Company Number: US-ABBOTT-11P-163-0708627-00

PATIENT
  Age: 53 Year
  Sex: Female

DRUGS (1)
  1. HUMIRA [Suspect]
     Indication: RHEUMATOID ARTHRITIS
     Dates: start: 20101201

REACTIONS (10)
  - JOINT SWELLING [None]
  - INCREASED TENDENCY TO BRUISE [None]
  - PARAESTHESIA [None]
  - ASTHENIA [None]
  - PALLOR [None]
  - RHEUMATOID ARTHRITIS [None]
  - MUSCLE ATROPHY [None]
  - EXFOLIATIVE RASH [None]
  - ALOPECIA [None]
  - DYSPNOEA [None]
